FAERS Safety Report 9988310 (Version 3)
Quarter: 2014Q1

REPORT INFORMATION
  Report Type: Spontaneous
  Country: IT (occurrence: IT)
  Receive Date: 20140310
  Receipt Date: 20140314
  Transmission Date: 20141002
  Serious: Yes (Hospitalization)
  Sender: FDA-Public Use
  Company Number: PHHY2014IT024213

PATIENT
  Age: 34 Year
  Sex: Female

DRUGS (7)
  1. MIRTAZAPINE [Suspect]
     Indication: INTENTIONAL SELF-INJURY
     Dosage: 900 MG, ONCE/SINGLE
     Route: 048
     Dates: start: 20140121, end: 20140121
  2. FLECAINIDE [Suspect]
     Indication: INTENTIONAL SELF-INJURY
     Dosage: 300 MG, ONCE/SINGLE
     Route: 048
     Dates: start: 20140121, end: 20140121
  3. SODIUM BICARBONATE [Suspect]
     Dosage: 60 MEQ/L,
  4. BUSCOFEN [Concomitant]
  5. SOTALOL [Concomitant]
  6. SERTRALINE [Concomitant]
  7. BROMAZEPAM [Concomitant]

REACTIONS (5)
  - Sopor [Recovering/Resolving]
  - Toxicity to various agents [Recovering/Resolving]
  - Drug abuse [Recovering/Resolving]
  - Atrioventricular block [Recovering/Resolving]
  - Hypotension [Recovering/Resolving]
